FAERS Safety Report 8579936-6 (Version None)
Quarter: 2012Q3

REPORT INFORMATION
  Report Type: 
  Country: None (occurrence: None)
  Receive Date: 20120808
  Receipt Date: 20120727
  Transmission Date: 20120928
  Serious: Yes (Hospitalization)
  Sender: FDA-Public Use
  Company Number: IT-ELI_LILLY_AND_COMPANY-IT201010002263

PATIENT
  Sex: Female

DRUGS (5)
  1. CLARITHROMYCIN [Concomitant]
     Indication: PYREXIA
     Dosage: 250 MG, QD
     Route: 048
     Dates: start: 20100701, end: 20100708
  2. ACETAMINOPHEN [Concomitant]
  3. IBUPROFEN [Concomitant]
     Indication: PYREXIA
     Dosage: 600 MG, QD
     Route: 048
     Dates: start: 20100801, end: 20100831
  4. LAMOTRIGINE [Concomitant]
     Indication: BIPOLAR DISORDER
     Dosage: UNK
     Dates: start: 20100701, end: 20100721
  5. PROZAC [Suspect]
     Indication: BIPOLAR DISORDER
     Dosage: 20 MG, QD
     Route: 048
     Dates: start: 20070101, end: 20100822

REACTIONS (3)
  - HEPATITIS ACUTE [None]
  - OFF LABEL USE [None]
  - MONONUCLEOSIS SYNDROME [None]
